FAERS Safety Report 20455323 (Version 1)
Quarter: 2022Q1

REPORT INFORMATION
  Report Type: Spontaneous
  Country: DE (occurrence: None)
  Receive Date: 20220210
  Receipt Date: 20220210
  Transmission Date: 20220424
  Serious: Yes (Hospitalization, Other)
  Sender: FDA-Public Use
  Company Number: 2022A057267

PATIENT
  Age: 51 Year
  Sex: Male
  Weight: 83 kg

DRUGS (5)
  1. ROFLUMILAST [Suspect]
     Active Substance: ROFLUMILAST
     Dosage: UNKNOWN DOSE
     Route: 048
  2. BUDESONIDE\FORMOTEROL [Suspect]
     Active Substance: BUDESONIDE\FORMOTEROL
     Dosage: 4.5 / 160 UG PER INHALATION 2-0-2 AND IF NEEDED AS REQUIRED
     Route: 055
  3. TIOTROPIUM [Concomitant]
     Active Substance: TIOTROPIUM
     Dosage: 2.5 UG PER INHALATION
  4. MONTELUKAST [Concomitant]
     Active Substance: MONTELUKAST SODIUM
     Route: 048
  5. PREDNISOLONE [Concomitant]
     Active Substance: PREDNISOLONE
     Dosage: 40.0MG AS REQUIRED
     Route: 048

REACTIONS (2)
  - Chronic obstructive pulmonary disease [Unknown]
  - Drug ineffective [Unknown]
